FAERS Safety Report 4588951-9 (Version None)
Quarter: 2005Q1

REPORT INFORMATION
  Report Type: 
  Country: None (occurrence: None)
  Receive Date: 20050216
  Receipt Date: 20050127
  Transmission Date: 20050727
  Serious: No
  Sender: FDA-Public Use
  Company Number: USA050189291

PATIENT
  Age: 36 Year
  Sex: Male

DRUGS (2)
  1. STRATTERA [Suspect]
     Dates: start: 20040101
  2. OMNICEF [Concomitant]

REACTIONS (3)
  - ALANINE AMINOTRANSFERASE INCREASED [None]
  - ASPARTATE AMINOTRANSFERASE INCREASED [None]
  - VIRAL INFECTION [None]
